FAERS Safety Report 21098940 (Version 1)
Quarter: 2022Q3

REPORT INFORMATION
  Report Type: Spontaneous
  Country: US (occurrence: None)
  Receive Date: 20220718
  Receipt Date: 20220718
  Transmission Date: 20221027
  Serious: Yes (Other)
  Sender: FDA-Public Use
  Company Number: None

PATIENT
  Age: 30 Year
  Sex: Female
  Weight: 119.25 kg

DRUGS (14)
  1. EMGALITY [Suspect]
     Active Substance: GALCANEZUMAB-GNLM
     Indication: Migraine
     Dosage: FREQUENCY : MONTHLY;?
     Route: 058
     Dates: start: 20200422, end: 20220420
  2. MIRENA [Concomitant]
     Active Substance: LEVONORGESTREL
  3. ESCITALOPRAM [Concomitant]
     Active Substance: ESCITALOPRAM OXALATE
  4. BUSPIRONE [Concomitant]
     Active Substance: BUSPIRONE HYDROCHLORIDE
  5. cyclobenzepriene [Concomitant]
  6. BACLOFEN [Concomitant]
     Active Substance: BACLOFEN
  7. AIMOVIG [Concomitant]
     Active Substance: ERENUMAB-AOOE
  8. PREGABALIN [Concomitant]
     Active Substance: PREGABALIN
  9. VITAMIN D [Concomitant]
     Active Substance: VITAMIN D NOS
  10. NAPROXEN [Concomitant]
     Active Substance: NAPROXEN
  11. SUDAFED [Concomitant]
     Active Substance: PSEUDOEPHEDRINE HYDROCHLORIDE
  12. MELATONIN [Concomitant]
     Active Substance: MELATONIN
  13. FLONASE [Concomitant]
     Active Substance: FLUTICASONE PROPIONATE
  14. CETIRIZINE [Concomitant]
     Active Substance: CETIRIZINE HYDROCHLORIDE

REACTIONS (3)
  - Injection site swelling [None]
  - Injection site irritation [None]
  - Injection site discolouration [None]

NARRATIVE: CASE EVENT DATE: 20220312
